FAERS Safety Report 9993506 (Version 1)
Quarter: 2014Q1

REPORT INFORMATION
  Report Type: Spontaneous
  Country: MX (occurrence: MX)
  Receive Date: 20140310
  Receipt Date: 20140310
  Transmission Date: 20141002
  Serious: Yes (Other)
  Sender: FDA-Public Use
  Company Number: PHHY2014MX029028

PATIENT
  Age: 83 Year
  Sex: Female

DRUGS (7)
  1. ACLASTA [Suspect]
     Indication: OSTEOPOROSIS
     Dosage: 5 MG/100ML, ANNUALLY
     Route: 042
     Dates: start: 201103
  2. ACLASTA [Suspect]
     Dosage: 5 MG/100ML, ANNUALLY
     Route: 042
     Dates: start: 201203
  3. PROPAFENONE [Concomitant]
     Indication: CARDIAC DISORDER
     Dosage: 150 MG, UNK
     Dates: start: 201003
  4. LIPITOR [Concomitant]
     Indication: CARDIAC DISORDER
     Dosage: 10 MG, UNK
     Dates: start: 201005
  5. LYRICA [Concomitant]
     Dosage: UNK UKN, UNK
  6. CALCIUM [Concomitant]
     Dosage: UNK UKN, UNK
  7. MULTI-VIT [Concomitant]
     Dosage: UNK UKN, UNK

REACTIONS (9)
  - Herpes zoster [Recovered/Resolved]
  - Nerve injury [Recovered/Resolved]
  - Nerve degeneration [Recovered/Resolved]
  - Pain [Recovered/Resolved]
  - Flank pain [Recovered/Resolved]
  - Ileus paralytic [Not Recovered/Not Resolved]
  - Joint dislocation [Recovered/Resolved]
  - Hypertensive heart disease [Not Recovered/Not Resolved]
  - Ventricular extrasystoles [Not Recovered/Not Resolved]
